FAERS Safety Report 24677812 (Version 2)
Quarter: 2024Q4

REPORT INFORMATION
  Report Type: Spontaneous
  Country: KR (occurrence: KR)
  Receive Date: 20241129
  Receipt Date: 20241205
  Transmission Date: 20250115
  Serious: Yes (Death, Hospitalization)
  Sender: SAMSUNG BIOEPIS
  Company Number: KR-SAMSUNG BIOEPIS-SB-2024-35650

PATIENT
  Age: 79 Year
  Sex: Female
  Weight: 36.9 kg

DRUGS (54)
  1. TRASTUZUMAB [Suspect]
     Active Substance: TRASTUZUMAB
     Indication: Gallbladder cancer
     Route: 042
     Dates: start: 20240422, end: 20241023
  2. TRASTUZUMAB [Suspect]
     Active Substance: TRASTUZUMAB
     Indication: HER2 positive biliary tract cancer
  3. NIVOLUMAB [Suspect]
     Active Substance: NIVOLUMAB
     Indication: Gallbladder cancer
     Route: 042
     Dates: start: 20240315, end: 20241023
  4. NIVOLUMAB [Suspect]
     Active Substance: NIVOLUMAB
     Indication: HER2 positive biliary tract cancer
  5. GEMCITABINE [Suspect]
     Active Substance: GEMCITABINE
     Indication: Gallbladder cancer
     Dosage: Q3WKS, D1,D8;
     Route: 042
     Dates: start: 20240315, end: 20240618
  6. GEMCITABINE [Suspect]
     Active Substance: GEMCITABINE
     Indication: HER2 positive biliary tract cancer
  7. CISPLATIN [Suspect]
     Active Substance: CISPLATIN
     Indication: Gallbladder cancer
     Dosage: Q3WKS, D1,D8;
     Route: 042
     Dates: start: 20240315, end: 20240618
  8. CISPLATIN [Suspect]
     Active Substance: CISPLATIN
     Indication: HER2 positive biliary tract cancer
  9. Uni-C [Concomitant]
     Indication: Prophylaxis
     Dosage: 20 ML 1 VIAL; AS NECCESARY
     Route: 042
     Dates: start: 20240321
  10. HERBALS [Concomitant]
     Active Substance: HERBALS
     Indication: Prophylaxis
     Dosage: 1 CAP;
     Route: 048
     Dates: start: 20231024
  11. Dong-A Gaster [Concomitant]
     Indication: Prophylaxis
     Dosage: 1 TAB;
     Route: 048
     Dates: start: 20240308
  12. NORZYME [Concomitant]
     Indication: Prophylaxis
     Dosage: 1 CAP;
     Route: 048
     Dates: start: 20240308
  13. ACETAMINOPHEN\TRAMADOL [Concomitant]
     Active Substance: ACETAMINOPHEN\TRAMADOL
     Indication: Prophylaxis
     Dosage: 1 TAB;
     Route: 048
     Dates: start: 20240308
  14. ACETAMINOPHEN\TRAMADOL [Concomitant]
     Active Substance: ACETAMINOPHEN\TRAMADOL
     Dosage: 1 TAB;
     Route: 048
     Dates: start: 20240930
  15. Mago [Concomitant]
     Indication: Product used for unknown indication
     Dosage: 1 CAP;
     Route: 048
     Dates: start: 20231027
  16. OFLOXACIN [Concomitant]
     Active Substance: OFLOXACIN
     Indication: Prophylaxis
     Dosage: 1 TU PRN APPLY; AS NECESSARY
     Dates: start: 20240313
  17. OLMESARTAN MEDOXOMIL [Concomitant]
     Active Substance: OLMESARTAN MEDOXOMIL
     Indication: Product used for unknown indication
     Dosage: 1 TAB;
     Route: 048
     Dates: start: 20240315
  18. CARVEDILOL [Concomitant]
     Active Substance: CARVEDILOL
     Indication: Product used for unknown indication
     Dosage: 1 TAB;
     Route: 048
     Dates: start: 20240318
  19. OXYCODONE HYDROCHLORIDE [Concomitant]
     Active Substance: OXYCODONE HYDROCHLORIDE
     Indication: Product used for unknown indication
     Dosage: 1 TAB;
     Route: 048
     Dates: start: 20240321
  20. AKYNZEO [Concomitant]
     Indication: Prophylaxis
     Dosage: 1 CAP, OTHER;
     Route: 048
     Dates: start: 20240321
  21. Yuhan Dexamethasone Disodium Phosphate [Concomitant]
     Indication: Prophylaxis
     Dosage: 1 AMP; AS NECESSARY
     Route: 042
     Dates: start: 20240315
  22. Tmipool [Concomitant]
     Indication: Prophylaxis
     Dosage: 1 VIAL; AS NECESSARY
     Route: 042
     Dates: start: 20240321
  23. Huons Chlorpheniramine Maleate [Concomitant]
     Indication: Prophylaxis
     Dosage: 1 AMP; AS NECESSARY
     Route: 042
     Dates: start: 20240422
  24. BANAN [Concomitant]
     Active Substance: CEFPODOXIME PROXETIL
     Indication: Product used for unknown indication
     Dosage: 1 TAB;
     Route: 048
     Dates: start: 20240604
  25. CHLORHEXIDINE GLUCONATE [Concomitant]
     Active Substance: CHLORHEXIDINE GLUCONATE
     Indication: Product used for unknown indication
     Dosage: 1 BOTTLE GAG; AS NECESSARY
     Dates: start: 20240604
  26. Trison Kit [Concomitant]
     Indication: Product used for unknown indication
     Dosage: 1 KIT; ONCE
     Route: 042
     Dates: start: 20240610
  27. Trison Kit [Concomitant]
     Dosage: 1 KIT;
     Route: 042
     Dates: start: 20240910
  28. METRONIDAZOLE [Concomitant]
     Active Substance: METRONIDAZOLE
     Indication: Product used for unknown indication
     Dosage: 1 BOTTLE 100 ML; ONCE
     Route: 042
     Dates: start: 20240610
  29. Samsung Amoburofen Premix Injection [Concomitant]
     Indication: Product used for unknown indication
     Dosage: 1 BAG; ONCE
     Route: 042
     Dates: start: 20240610
  30. HUMULIN R [Concomitant]
     Active Substance: INSULIN HUMAN
     Indication: Product used for unknown indication
     Route: 058
     Dates: start: 20240611
  31. Dai Han Calcium Gluconate [Concomitant]
     Indication: Product used for unknown indication
     Dosage: 1 AMP;
     Route: 042
     Dates: start: 20240611
  32. KASUWELL [Concomitant]
     Indication: Product used for unknown indication
     Dosage: 1 PK;
     Route: 042
     Dates: start: 20240611
  33. CALCIUM POLYSTYRENE SULFONATE [Concomitant]
     Active Substance: CALCIUM POLYSTYRENE SULFONATE
     Indication: Product used for unknown indication
     Dosage: 6 PK;
     Route: 042
     Dates: start: 20240611
  34. Dulackhan [Concomitant]
     Indication: Product used for unknown indication
     Dosage: 1 PK; 15 ML;
     Route: 048
     Dates: start: 20240617
  35. ENCOVER [Concomitant]
     Indication: Prophylaxis
     Dosage: 200 ML (COFFEE FLAVOR) 1 BAG; AS NECESSARY
     Route: 048
     Dates: start: 20240626
  36. FLASINYL [Concomitant]
     Indication: Product used for unknown indication
     Dosage: 1 TAB;
     Route: 048
     Dates: start: 20240626
  37. Inno. N Levofloxacin [Concomitant]
     Indication: Product used for unknown indication
     Dosage: 1 BAG 500 MG/100 ML; AS NECESSARY
     Route: 042
     Dates: start: 20240626
  38. Samsung Ibuprofen [Concomitant]
     Indication: Product used for unknown indication
     Dosage: 1 BAG;
     Route: 042
     Dates: start: 20240626
  39. SMOFLIPID [Concomitant]
     Active Substance: FISH OIL\MEDIUM-CHAIN TRIGLYCERIDES\OLIVE OIL\SOYBEAN OIL
     Indication: Prophylaxis
     Dosage: 1 BAG 500 ML; AS NECESSARY
     Route: 042
     Dates: start: 20240626
  40. Myungmoon Methocarbamol [Concomitant]
     Indication: Product used for unknown indication
     Dosage: 1 VIAL 1G/10 ML; AS NECESSARY
     Route: 042
     Dates: start: 20240708
  41. ACETPHEN PREMIX [Concomitant]
     Indication: Product used for unknown indication
     Dosage: 1 BAG 100 ML; ONCE
     Route: 042
     Dates: start: 20240708
  42. TRAMADOL HYDROCHLORIDE [Concomitant]
     Active Substance: TRAMADOL HYDROCHLORIDE
     Indication: Product used for unknown indication
     Dosage: 1 AMP 50 MG/ML; ONCE
     Route: 042
     Dates: start: 20240708
  43. TRAMADOL HYDROCHLORIDE [Concomitant]
     Active Substance: TRAMADOL HYDROCHLORIDE
     Dosage: 1 AMP;
     Route: 042
     Dates: start: 20240912
  44. DICAMAX [Concomitant]
     Indication: Product used for unknown indication
     Dosage: DICAMAX 1000 1 TAB;
     Route: 042
     Dates: start: 20240718
  45. TRAZODONE HYDROCHLORIDE [Concomitant]
     Active Substance: TRAZODONE HYDROCHLORIDE
     Indication: Product used for unknown indication
     Dosage: 1 TAB;
     Route: 048
     Dates: start: 20240730
  46. NUCYNTA [Concomitant]
     Active Substance: TAPENTADOL HYDROCHLORIDE
     Indication: Product used for unknown indication
     Dosage: 1 TAB;
     Route: 048
     Dates: start: 20240325
  47. CHOLINE ALFOSCERATE [Concomitant]
     Active Substance: CHOLINE ALFOSCERATE
     Indication: Prophylaxis
     Dosage: 1 CAP;
     Route: 048
     Dates: start: 20240718
  48. Mytonin [Concomitant]
     Indication: Product used for unknown indication
     Dosage: 1 TAB;
     Route: 048
     Dates: start: 20240718
  49. ULTRACET [Concomitant]
     Active Substance: ACETAMINOPHEN\TRAMADOL HYDROCHLORIDE
     Indication: Product used for unknown indication
     Dosage: 1 TAB; AS NECESSARY
     Route: 048
     Dates: start: 20240813
  50. PROPACETAMOL HYDROCHLORIDE [Concomitant]
     Active Substance: PROPACETAMOL HYDROCHLORIDE
     Indication: Product used for unknown indication
     Dosage: 1 VIAL;
     Route: 042
     Dates: start: 20240912
  51. PROPACETAMOL HYDROCHLORIDE [Concomitant]
     Active Substance: PROPACETAMOL HYDROCHLORIDE
     Dosage: 1 VIAL;
     Route: 042
     Dates: start: 20240930
  52. PIPERACILLIN SODIUM\TAZOBACTAM SODIUM [Concomitant]
     Active Substance: PIPERACILLIN SODIUM\TAZOBACTAM SODIUM
     Indication: Product used for unknown indication
     Dosage: 1 VIAL;
     Route: 042
     Dates: start: 20241011
  53. ATIVAN [Concomitant]
     Active Substance: LORAZEPAM
     Indication: Product used for unknown indication
     Dosage: 1 AMP 4 MG/1 ML/A (IIDONG);
     Route: 042
     Dates: start: 20241114
  54. EPILATAM [Concomitant]
     Indication: Product used for unknown indication
     Dosage: 1 VIAL 500 MG/5 ML;
     Route: 042
     Dates: start: 20241114

REACTIONS (2)
  - Cerebral infarction [Fatal]
  - Off label use [Unknown]

NARRATIVE: CASE EVENT DATE: 20241114
